FAERS Safety Report 8830973 (Version 1)
Quarter: 2012Q4

REPORT INFORMATION
  Report Type: 
  Country: US (occurrence: US)
  Receive Date: 20121009
  Receipt Date: 20121009
  Transmission Date: 20130627
  Serious: No
  Sender: FDA-Public Use
  Company Number: US-009507513-1208USA001191

PATIENT

DRUGS (1)
  1. IMPLANON [Suspect]
     Route: 059

REACTIONS (2)
  - Complication of device insertion [Unknown]
  - No adverse event [Unknown]
